FAERS Safety Report 4470553-6 (Version None)
Quarter: 2004Q4

REPORT INFORMATION
  Report Type: 
  Country: None (occurrence: None)
  Receive Date: 20041011
  Receipt Date: 20040930
  Transmission Date: 20050328
  Serious: Yes (Death, Other)
  Sender: FDA-Public Use
  Company Number: US-JNJFOC-20041000685

PATIENT
  Age: 81 Year
  Sex: Female

DRUGS (4)
  1. INFLIXIMAB [Suspect]
     Indication: CROHN'S DISEASE
     Dosage: 3 INFUSIONS OF UNKNOWN DOSAGE OVER 4 MONTHS
     Route: 042
  2. ANTIBIOTICS [Concomitant]
     Indication: CROHN'S DISEASE
  3. MERCAPTOPURINE [Concomitant]
     Indication: CROHN'S DISEASE
  4. PREDNISONE [Concomitant]

REACTIONS (5)
  - CYTOMEGALOVIRUS GASTRITIS [None]
  - DISSEMINATED INTRAVASCULAR COAGULATION [None]
  - LACTIC ACIDOSIS [None]
  - MYCOSIS FUNGOIDES [None]
  - UPPER GASTROINTESTINAL HAEMORRHAGE [None]
